FAERS Safety Report 4414823-6 (Version None)
Quarter: 2004Q3

REPORT INFORMATION
  Report Type: 
  Country: None (occurrence: None)
  Receive Date: 20040804
  Receipt Date: 20031103
  Transmission Date: 20050211
  Serious: No
  Sender: FDA-Public Use
  Company Number: US-BRISTOL-MYERS SQUIBB COMPANY-12425286

PATIENT
  Age: 44 Year
  Sex: Female
  Weight: 12 kg

DRUGS (1)
  1. GLUCOVANCE [Suspect]
     Indication: DIABETES MELLITUS NON-INSULIN-DEPENDENT
     Dosage: DOSAGE FORM = TABLET (2.5MG/500MG PER TABLET)
     Route: 048
     Dates: start: 20031102

REACTIONS (2)
  - DIZZINESS [None]
  - TREMOR [None]
